FAERS Safety Report 8043334-4 (Version None)
Quarter: 2012Q1

REPORT INFORMATION
  Report Type: 
  Country: None (occurrence: None)
  Receive Date: 20120112
  Receipt Date: 20120106
  Transmission Date: 20120608
  Serious: Yes (Death)
  Sender: FDA-Public Use
  Company Number: JP-GLAXOSMITHKLINE-B0774465A

PATIENT
  Age: 69 Year
  Sex: Male

DRUGS (3)
  1. HYCAMTIN [Suspect]
     Indication: LUNG NEOPLASM MALIGNANT
     Dosage: 1.5MG PER DAY
     Route: 042
     Dates: start: 20110830
  2. KYTRIL [Concomitant]
     Dosage: 3MG PER DAY
     Route: 042
     Dates: start: 20110830
  3. ORGADRONE [Concomitant]
     Dosage: 3.8MG PER DAY
     Route: 042
     Dates: start: 20110830

REACTIONS (1)
  - INTERSTITIAL LUNG DISEASE [None]
